FAERS Safety Report 8168464-8 (Version None)
Quarter: 2012Q1

REPORT INFORMATION
  Report Type: 
  Country: None (occurrence: None)
  Receive Date: 20120227
  Receipt Date: 20120216
  Transmission Date: 20120608
  Serious: Yes (Hospitalization, Other)
  Sender: FDA-Public Use
  Company Number: US-BAYER-2011-036945

PATIENT
  Age: 18 Year
  Sex: Female
  Weight: 67 kg

DRUGS (2)
  1. YAZ [Suspect]
     Indication: CONTRACEPTION
     Dosage: UNK
     Dates: start: 20061228, end: 20070701
  2. YAZ [Suspect]
     Indication: DYSMENORRHOEA

REACTIONS (7)
  - DIZZINESS [None]
  - HAEMORRHAGE INTRACRANIAL [None]
  - MIGRAINE [None]
  - HEADACHE [None]
  - VOMITING [None]
  - PAIN [None]
  - INTRACRANIAL VENOUS SINUS THROMBOSIS [None]
